FAERS Safety Report 9502922 (Version 1)
Quarter: 2013Q3

REPORT INFORMATION
  Report Type: Report from Study
  Country: US (occurrence: US)
  Receive Date: 20130906
  Receipt Date: 20130906
  Transmission Date: 20140515
  Serious: No
  Sender: FDA-Public Use
  Company Number: PHEH2013US018493

PATIENT
  Age: 86 Year
  Sex: Female
  Weight: 74.83 kg

DRUGS (11)
  1. TASIGNA [Suspect]
     Indication: CHRONIC MYELOID LEUKAEMIA
     Dosage: 200 MG, BID
     Route: 048
  2. TRAMADOL HYDROCHLORIDE [Concomitant]
  3. BENZONATATE [Concomitant]
  4. GABAPENTIN [Concomitant]
  5. PENICILLIN V [Concomitant]
  6. POTASSIUM TABLETS EFFERVESCENT [Concomitant]
  7. PAROXETINE HYDROCHLORIDE [Concomitant]
  8. HYDROCHLOORTHIAZIDE [Concomitant]
  9. SIMVASTATIN [Concomitant]
  10. LEVOTHYROXINE SODIUM [Concomitant]
  11. ASPIRIN [Concomitant]

REACTIONS (2)
  - White blood cell count decreased [Unknown]
  - Nausea [Unknown]
